FAERS Safety Report 4698488-4 (Version None)
Quarter: 2005Q2

REPORT INFORMATION
  Report Type: 
  Country: None (occurrence: None)
  Receive Date: 20050622
  Receipt Date: 20050614
  Transmission Date: 20051028
  Serious: Yes (Hospitalization, Other)
  Sender: FDA-Public Use
  Company Number: 2005088816

PATIENT
  Age: 48 Year
  Sex: Male
  Weight: 74.8435 kg

DRUGS (6)
  1. NEURONTIN [Suspect]
     Indication: EPILEPSY
     Dosage: ORAL
     Route: 048
  2. KEPPRA [Concomitant]
  3. ATIVAN [Concomitant]
  4. TEGRETOL [Concomitant]
  5. VITAMINS (VITAMINS) [Suspect]
  6. ALL OTHER THERAPEUTIC PRODUCTS (ALL OTHER THERAPEUTIC PRODUCTS) [Concomitant]

REACTIONS (4)
  - CEREBRAL DISORDER [None]
  - DEPRESSION [None]
  - DRUG INEFFECTIVE [None]
  - NASOPHARYNGITIS [None]
